FAERS Safety Report 7829203-0 (Version None)
Quarter: 2011Q4

REPORT INFORMATION
  Report Type: 
  Country: None (occurrence: None)
  Receive Date: 20111020
  Receipt Date: 20111014
  Transmission Date: 20120403
  Serious: Yes (Hospitalization, Other)
  Sender: FDA-Public Use
  Company Number: PHHY2011FR91312

PATIENT
  Age: 73 Year
  Sex: Female

DRUGS (2)
  1. ZOLEDRONOC ACID [Suspect]
     Indication: OSTEOPOROSIS
     Dosage: UNK UKN, UNK
     Route: 042
  2. PROPRANOLOL [Concomitant]
     Indication: EXTRASYSTOLES
     Dosage: 0.5 TABLETS DAILY

REACTIONS (4)
  - RETINAL ARTERY THROMBOSIS [None]
  - LACUNAR INFARCTION [None]
  - DIPLOPIA [None]
  - ATRIAL FIBRILLATION [None]
